FAERS Safety Report 9792639 (Version 4)
Quarter: 2019Q3

REPORT INFORMATION
  Report Type: Spontaneous
  Country: US (occurrence: US)
  Receive Date: 20140102
  Receipt Date: 20190822
  Transmission Date: 20191005
  Serious: Yes (Disabling)
  Sender: FDA-Public Use
  Company Number: US-SANOFI-AVENTIS-2013SA002653

PATIENT
  Age: 48 Year
  Sex: Female
  Weight: 58 kg

DRUGS (8)
  1. APRI [Concomitant]
     Active Substance: DESOGESTREL\ETHINYL ESTRADIOL
     Indication: ENDOMETRIOSIS
     Dosage: UNK UNK,1X
     Dates: start: 1997
  2. VITAMIN B COMPLEX [Concomitant]
     Active Substance: CYANOCOBALAMIN\DEXPANTHENOL\NIACINAMIDE\PYRIDOXINE HYDROCHLORIDE\RIBOFLAVIN 5^-PHOSPHATE SODIUM\THIAMINE HYDROCHLORIDE\VITAMIN B COMPLEX
     Indication: SUPPLEMENTATION THERAPY
     Dosage: UNK UNK,1X
     Dates: start: 1980
  3. AUBAGIO [Suspect]
     Active Substance: TERIFLUNOMIDE
     Dosage: 14 MG,QD
     Route: 048
     Dates: start: 20130916
  4. VITAMINS NOS [Concomitant]
     Active Substance: VITAMINS
     Indication: SUPPLEMENTATION THERAPY
     Dosage: UNK UNK,1X
     Dates: start: 1980
  5. AUBAGIO [Suspect]
     Active Substance: TERIFLUNOMIDE
     Indication: MULTIPLE SCLEROSIS
     Dosage: 14 MG,1X
     Route: 048
     Dates: start: 20121205, end: 20130521
  6. AUBAGIO [Suspect]
     Active Substance: TERIFLUNOMIDE
     Dosage: 14 MG,QD
     Route: 048
     Dates: start: 20180126
  7. LOSARTAN. [Concomitant]
     Active Substance: LOSARTAN
     Indication: HYPERTENSION
     Dosage: UNK UNK,1X
     Dates: start: 201205
  8. FERRIC HYDROXIDE POLYMALTOSE COMPLEX [Concomitant]
     Active Substance: IRON POLYMALTOSE
     Indication: SUPPLEMENTATION THERAPY
     Dosage: UNK UNK,1X

REACTIONS (8)
  - Rotavirus infection [Recovered/Resolved]
  - Loss of personal independence in daily activities [Unknown]
  - Depression [Unknown]
  - Abdominal pain lower [Recovered/Resolved]
  - Fatigue [Not Recovered/Not Resolved]
  - Diarrhoea [Recovered/Resolved]
  - Product dose omission [Unknown]
  - Alopecia [Recovered/Resolved]

NARRATIVE: CASE EVENT DATE: 20121229
